FAERS Safety Report 20685501 (Version 2)
Quarter: 2022Q2

REPORT INFORMATION
  Report Type: Report from Study
  Country: FR (occurrence: FR)
  Receive Date: 20220407
  Receipt Date: 20220625
  Transmission Date: 20220721
  Serious: Yes (Hospitalization)
  Sender: FDA-Public Use
  Company Number: FR-TAKEDA-FR201603209

PATIENT
  Age: 13 Year
  Sex: Male

DRUGS (29)
  1. IDURSULFASE [Suspect]
     Active Substance: IDURSULFASE
     Indication: Mucopolysaccharidosis II
     Dosage: 0.5 MILLIGRAM, 1/WEEK
     Route: 042
     Dates: start: 20070108
  2. IDURSULFASE [Suspect]
     Active Substance: IDURSULFASE
     Dosage: 0.53 MILLIGRAM, 1/WEEK
     Route: 042
     Dates: start: 20070326
  3. IDURSULFASE [Suspect]
     Active Substance: IDURSULFASE
     Dosage: 0.58 MILLIGRAM, 1/WEEK
     Route: 042
     Dates: start: 20121018
  4. BECLOMETHASONE DIPROPIONATE [Concomitant]
     Active Substance: BECLOMETHASONE DIPROPIONATE
     Indication: Respiratory disorder
     Dosage: UNK
     Route: 055
     Dates: start: 200302, end: 2003
  5. ENALAPRIL [Concomitant]
     Active Substance: ENALAPRIL
     Indication: Endocarditis prophylaxis
     Dosage: UNK
     Route: 048
     Dates: start: 20050407
  6. SALMETEROL [Concomitant]
     Active Substance: SALMETEROL
     Indication: Respiratory disorder
     Dosage: UNK
     Route: 055
     Dates: start: 20060323, end: 2008
  7. PREDNISOLONE [Concomitant]
     Active Substance: PREDNISOLONE
     Indication: Premedication
     Dosage: UNK
     Route: 048
     Dates: start: 20070212
  8. PREDNISOLONE [Concomitant]
     Active Substance: PREDNISOLONE
     Indication: Pain
     Dosage: UNK
     Route: 048
     Dates: start: 200702, end: 20090219
  9. PREDNISOLONE [Concomitant]
     Active Substance: PREDNISOLONE
     Dosage: UNK
     Route: 048
     Dates: start: 20090225, end: 20090905
  10. CETIRIZINE [Concomitant]
     Active Substance: CETIRIZINE HYDROCHLORIDE
     Indication: Premedication
     Dosage: UNK
     Route: 048
     Dates: start: 20070212, end: 20090905
  11. BUDESONIDE [Concomitant]
     Active Substance: BUDESONIDE
     Indication: Respiratory disorder
     Dosage: UNK
     Route: 055
     Dates: start: 2008, end: 20090905
  12. IPRATROPIUM BROMIDE [Concomitant]
     Active Substance: IPRATROPIUM BROMIDE
     Indication: Respiratory disorder
     Dosage: UNK
     Route: 055
     Dates: start: 2008, end: 20090905
  13. AMITRIPTYLINE [Concomitant]
     Active Substance: AMITRIPTYLINE
     Indication: Antidepressant therapy
     Dosage: UNK
     Route: 048
     Dates: start: 200911
  14. RISPERIDONE [Concomitant]
     Active Substance: RISPERIDONE
     Indication: Behaviour disorder
     Dosage: UNK
     Dates: start: 200911, end: 201107
  15. RISPERIDONE [Concomitant]
     Active Substance: RISPERIDONE
     Dosage: UNK
     Route: 048
     Dates: start: 201107, end: 201408
  16. ZYRTEC [Concomitant]
     Active Substance: CETIRIZINE HYDROCHLORIDE
     Indication: Premedication
     Dosage: UNK
     Route: 048
     Dates: start: 20100224, end: 20111019
  17. POLARAMINE [Concomitant]
     Active Substance: DEXCHLORPHENIRAMINE MALEATE
     Indication: Premedication
     Dosage: UNK
     Route: 048
     Dates: start: 201011, end: 20111020
  18. MELATONIN [Concomitant]
     Active Substance: MELATONIN
     Indication: Insomnia
     Dosage: UNK
     Route: 048
     Dates: start: 201012, end: 201406
  19. DESLORATADINE [Concomitant]
     Active Substance: DESLORATADINE
     Indication: Premedication
     Dosage: UNK
     Route: 048
     Dates: start: 20111020
  20. DESLORATADINE [Concomitant]
     Active Substance: DESLORATADINE
     Dosage: UNK
     Route: 048
     Dates: start: 20120423
  21. MOVICOL [Concomitant]
     Active Substance: POLYETHYLENE GLYCOL 3350\POTASSIUM CHLORIDE\SODIUM BICARBONATE\SODIUM CHLORIDE
     Indication: Constipation
     Dosage: UNK
     Route: 048
     Dates: start: 2017
  22. ALBUTEROL [Concomitant]
     Active Substance: ALBUTEROL
     Indication: Asthma
     Dosage: UNK
     Route: 055
     Dates: start: 201210, end: 201211
  23. ALBUTEROL [Concomitant]
     Active Substance: ALBUTEROL
     Indication: Cough
     Dosage: UNK
     Dates: start: 201311, end: 201312
  24. CHOLECALCIFEROL [Concomitant]
     Active Substance: CHOLECALCIFEROL
     Indication: Vitamin D deficiency
     Dosage: UNK
     Route: 048
     Dates: start: 20121018, end: 201304
  25. CHOLECALCIFEROL [Concomitant]
     Active Substance: CHOLECALCIFEROL
     Dosage: UNK
     Route: 048
     Dates: start: 20151015
  26. CEFUROXIME [Concomitant]
     Active Substance: CEFUROXIME
     Indication: Respiratory tract infection
     Dosage: UNK
     Route: 050
     Dates: start: 201311, end: 201312
  27. VAXIGRIP [Concomitant]
     Active Substance: INFLUENZA VIRUS VACCINE
     Indication: Prophylaxis
     Dosage: UNK
     Route: 055
     Dates: start: 20131101, end: 20131101
  28. NASONEX [Concomitant]
     Active Substance: MOMETASONE FUROATE
     Indication: Nasal obstruction
     Dosage: UNK
     Route: 045
     Dates: start: 20151015
  29. LEVETIRACETAM [Concomitant]
     Active Substance: LEVETIRACETAM
     Indication: Epilepsy
     Dosage: UNK
     Route: 065
     Dates: start: 20200309

REACTIONS (1)
  - Poor venous access [Recovered/Resolved]

NARRATIVE: CASE EVENT DATE: 20070523
